FAERS Safety Report 6032232-3 (Version None)
Quarter: 2009Q1

REPORT INFORMATION
  Report Type: 
  Country: None (occurrence: None)
  Receive Date: 20090108
  Receipt Date: 20090105
  Transmission Date: 20090719
  Serious: Yes (Death, Life-Threatening, Hospitalization)
  Sender: FDA-Public Use
  Company Number: UG-B.I. PHARMACEUTICALS,INC./RIDGEFIELD-2008-BP-17905BP

PATIENT
  Sex: Male
  Weight: 3 kg

DRUGS (4)
  1. VIRAMUNE [Suspect]
     Indication: PROPHYLAXIS AGAINST HIV INFECTION
     Route: 048
     Dates: start: 20081020, end: 20081126
  2. VIRAMUNE [Suspect]
     Dosage: 2.2ML
     Route: 048
     Dates: start: 20081201, end: 20081214
  3. AZT [Concomitant]
     Dates: start: 20081016, end: 20081022
  4. COTRIM [Concomitant]
     Indication: PROPHYLAXIS
     Route: 048
     Dates: end: 20081214

REACTIONS (3)
  - CARDIOPULMONARY FAILURE [None]
  - PNEUMONIA [None]
  - SEPSIS [None]
